FAERS Safety Report 26130556 (Version 1)
Quarter: 2025Q4

REPORT INFORMATION
  Report Type: Spontaneous
  Country: CN (occurrence: CN)
  Receive Date: 20251208
  Receipt Date: 20251208
  Transmission Date: 20260119
  Serious: Yes (Other)
  Sender: NOVO NORDISK
  Company Number: CN-NOVOPROD-1575461

PATIENT
  Age: 76 Year
  Sex: Male

DRUGS (1)
  1. INSULIN ASPART [Suspect]
     Active Substance: INSULIN ASPART
     Indication: Diabetes mellitus
     Dosage: 50 IU, QD (26 UNITS IN THE MORNING AND 24 UNITS IN THE EVENING)
     Dates: start: 202507

REACTIONS (2)
  - Deafness [Not Recovered/Not Resolved]
  - Visual impairment [Not Recovered/Not Resolved]
